FAERS Safety Report 5003947-0 (Version None)
Quarter: 2006Q2

REPORT INFORMATION
  Report Type: 
  Country: None (occurrence: None)
  Receive Date: 20060515
  Receipt Date: 20060515
  Transmission Date: 20061013
  Serious: Yes (Life-Threatening)
  Sender: FDA-Public Use
  Company Number: None

PATIENT
  Age: 84 Year
  Sex: Male
  Weight: 72 kg

DRUGS (7)
  1. LOVENOX [Suspect]
     Dosage: 30MG  BID  SQ
     Route: 058
  2. CLONAZEPAM [Concomitant]
  3. HALDOL [Concomitant]
  4. HYDROCORTISONE [Concomitant]
  5. LEVAQUIN [Concomitant]
  6. OXYCODONE [Concomitant]
  7. AMBIEN [Concomitant]

REACTIONS (2)
  - HAEMATOMA [None]
  - HYPOVOLAEMIC SHOCK [None]
